FAERS Safety Report 8430267-4 (Version None)
Quarter: 2012Q2

REPORT INFORMATION
  Report Type: 
  Country: None (occurrence: None)
  Receive Date: 20120323
  Receipt Date: 20110705
  Transmission Date: 20120825
  Serious: Yes (Hospitalization)
  Sender: FDA-Public Use
  Company Number: 163-21880-11070385

PATIENT
  Age: 72 Year
  Sex: Female

DRUGS (1)
  1. REVLIMID [Suspect]
     Indication: MYELOMA RECURRENCE
     Dosage: 5 MG, DAILY FOR 21 DAYS, PO/TEMPORARILY INTERRUPTED
     Route: 048
     Dates: start: 20110606

REACTIONS (1)
  - DEVICE RELATED INFECTION [None]
